FAERS Safety Report 9336294 (Version 2)
Quarter: 2013Q2

REPORT INFORMATION
  Report Type: Report from Study
  Country: CO (occurrence: CO)
  Receive Date: 20130607
  Receipt Date: 20130625
  Transmission Date: 20140414
  Serious: Yes (Other)
  Sender: FDA-Public Use
  Company Number: CO-ROCHE-1233289

PATIENT
  Age: 56 Year
  Sex: Male

DRUGS (8)
  1. LUCENTIS [Suspect]
     Indication: RETINAL EXUDATES
     Route: 050
     Dates: start: 20130409
  2. LUCENTIS [Suspect]
     Indication: MACULAR OEDEMA
  3. NEURAL [Concomitant]
  4. CICLOSPORINE [Concomitant]
  5. OMEPRAZOLE [Concomitant]
  6. LOVASTATIN [Concomitant]
  7. ENALAPRIL [Concomitant]
  8. CLONIDINE [Concomitant]

REACTIONS (1)
  - Retinal exudates [Recovered/Resolved]
